FAERS Safety Report 12353259 (Version 2)
Quarter: 2016Q2

REPORT INFORMATION
  Report Type: Report from Study
  Country: MX (occurrence: MX)
  Receive Date: 20160510
  Receipt Date: 20160524
  Transmission Date: 20160815
  Serious: Yes (Other)
  Sender: FDA-Public Use
  Company Number: PHHY2016MX062406

PATIENT
  Sex: Female

DRUGS (2)
  1. CO-DIOVAN [Suspect]
     Active Substance: HYDROCHLOROTHIAZIDE\VALSARTAN
     Indication: HYPERTENSION
     Dosage: 1 DF, QD
     Route: 065
  2. CO-DIOVAN [Suspect]
     Active Substance: HYDROCHLOROTHIAZIDE\VALSARTAN
     Dosage: 0.5 DF (HALF TABLET, 160/12.5 MG), QD (IN THE MORNING)
     Route: 048

REACTIONS (9)
  - Breast cancer [Recovered/Resolved]
  - Dry eye [Unknown]
  - Off label use [Unknown]
  - Visual impairment [Unknown]
  - Eye disorder [Unknown]
  - Blood pressure increased [Recovering/Resolving]
  - Retinal disorder [Unknown]
  - Feeling abnormal [Unknown]
  - Blood pressure decreased [Recovering/Resolving]

NARRATIVE: CASE EVENT DATE: 2010
